FAERS Safety Report 9050731 (Version 1)
Quarter: 2013Q1

REPORT INFORMATION
  Report Type: Report from Study
  Country: US (occurrence: US)
  Receive Date: 20130205
  Receipt Date: 20130205
  Transmission Date: 20140127
  Serious: No
  Sender: FDA-Public Use
  Company Number: US-VERTEX PHARMACEUTICALS INC.-2013-001471

PATIENT
  Sex: Male

DRUGS (10)
  1. VX-950 (TELAPREVIR) [Suspect]
     Indication: HEPATITIS C
     Dosage: 750 MG, TID
     Route: 048
  2. PEGASYS [Suspect]
     Indication: HEPATITIS C
     Dosage: 180 ?G, UNK
  3. RIBAPAK [Suspect]
     Indication: HEPATITIS C
     Dosage: UNK
  4. TRAZODONE [Concomitant]
     Dosage: 50 MG, UNK
  5. ATENOLOL [Concomitant]
     Dosage: 25 MG, UNK
  6. DICLOFENAC [Concomitant]
     Dosage: 100 MG, UNK
  7. CYCLOBENZAPRINE [Concomitant]
     Dosage: 5 MG, UNK
  8. TYLENOL [Concomitant]
     Dosage: 325 MG, UNK
  9. HYDROCODONE [Concomitant]
  10. HOMATROP [Concomitant]

REACTIONS (3)
  - Influenza like illness [Unknown]
  - Headache [Unknown]
  - Fatigue [Unknown]
